FAERS Safety Report 13142760 (Version 2)
Quarter: 2017Q4

REPORT INFORMATION
  Report Type: Spontaneous
  Country: CN (occurrence: CN)
  Receive Date: 20170124
  Receipt Date: 20171030
  Transmission Date: 20180320
  Serious: Yes (Other)
  Sender: FDA-Public Use
  Company Number: CN-BAYER-2017-008998

PATIENT
  Age: 16 Year
  Sex: Male

DRUGS (4)
  1. DACARBAZINE. [Suspect]
     Active Substance: DACARBAZINE
     Indication: DESMOID TUMOUR
     Dosage: 150 MG/M2, DAILY FOR 4 DAYS EVERY 28 DAYS, CYCLE 1
     Route: 041
     Dates: start: 20140524
  2. MELOXICAM. [Suspect]
     Active Substance: MELOXICAM
     Indication: DESMOID TUMOUR
     Dosage: 10 MG/M2, UNK
     Dates: start: 20140524, end: 20140524
  3. MELOXICAM. [Suspect]
     Active Substance: MELOXICAM
     Indication: DESMOID TUMOUR
     Dosage: 7.5 MG, BID
  4. DOXORUBICIN [Suspect]
     Active Substance: DOXORUBICIN
     Indication: DESMOID TUMOUR
     Dosage: 20 MG/M2, DAILY FOR 4 DAYS EVERY 28 DAYS
     Route: 042
     Dates: start: 20140524

REACTIONS (1)
  - Intestinal perforation [Recovered/Resolved]
